FAERS Safety Report 6589350-0 (Version None)
Quarter: 2010Q1

REPORT INFORMATION
  Report Type: 
  Country: None (occurrence: None)
  Receive Date: 20100205
  Receipt Date: 20100105
  Transmission Date: 20100710
  Serious: Yes (Hospitalization)
  Sender: FDA-Public Use
  Company Number: 005777

PATIENT
  Age: 83 Year
  Sex: Female

DRUGS (10)
  1. CO-CODAMOL (CO-CODAMOL) [Suspect]
     Indication: CANCER PAIN
  2. MORPHINE SULFATE [Suspect]
     Indication: CANCER PAIN
     Dosage: ORAL
     Route: 048
  3. DEXTROMORAMIDE (DEXTROMORAMIDE) [Suspect]
     Indication: CANCER PAIN
  4. FENTANYL-100 [Suspect]
     Indication: CANCER PAIN
  5. METHADONE (METHAD0NE) [Suspect]
     Indication: COUGH
  6. OXYCODONE HDROCHLORIDE (OXYCODONE HYDROCHLORIDE) [Suspect]
     Indication: CANCER PAIN
  7. TRAMADOL HCL [Suspect]
     Indication: CANCER PAIN
  8. CELECOXIB [Concomitant]
  9. CORTICOSTEROIDS [Concomitant]
  10. PAMIDRONIC ACID [Concomitant]

REACTIONS (7)
  - DIZZINESS [None]
  - DRUG HYPERSENSITIVITY [None]
  - FEELING HOT [None]
  - FLUSHING [None]
  - HYPERHIDROSIS [None]
  - PRURITUS [None]
  - VOMITING [None]
